FAERS Safety Report 6114585-0 (Version None)
Quarter: 2009Q1

REPORT INFORMATION
  Report Type: 
  Country: None (occurrence: None)
  Receive Date: 20090313
  Receipt Date: 20090227
  Transmission Date: 20090719
  Serious: Yes (Hospitalization, Other)
  Sender: FDA-Public Use
  Company Number: US-BAYER-200841509NA

PATIENT
  Age: 34 Year
  Sex: Female
  Weight: 72 kg

DRUGS (1)
  1. MIRENA [Suspect]
     Indication: CONTRACEPTION
     Route: 015
     Dates: start: 20080312

REACTIONS (3)
  - AMENORRHOEA [None]
  - BLOOD HUMAN CHORIONIC GONADOTROPIN INCREASED [None]
  - ECTOPIC PREGNANCY WITH INTRAUTERINE DEVICE [None]
